FAERS Safety Report 12105805 (Version 1)
Quarter: 2016Q1

REPORT INFORMATION
  Report Type: Spontaneous
  Country: US (occurrence: US)
  Receive Date: 20160223
  Receipt Date: 20160223
  Transmission Date: 20160526
  Serious: Yes (Other)
  Sender: FDA-Public Use
  Company Number: US-PFM-US-2015-2873

PATIENT
  Sex: Male

DRUGS (1)
  1. NAVELBINE [Suspect]
     Active Substance: VINORELBINE TARTRATE
     Indication: NON-SMALL CELL LUNG CANCER

REACTIONS (3)
  - Treatment failure [None]
  - Brain cancer metastatic [None]
  - Malignant neoplasm progression [Unknown]
